FAERS Safety Report 5999435-5 (Version None)
Quarter: 2008Q4

REPORT INFORMATION
  Report Type: 
  Country: None (occurrence: None)
  Receive Date: 20081211
  Receipt Date: 20081211
  Transmission Date: 20090506
  Serious: No
  Sender: FDA-Public Use
  Company Number: None

PATIENT
  Sex: Female

DRUGS (2)
  1. FLUTICASONE PROPIONATE [Suspect]
     Indication: RHINITIS ALLERGIC
     Dosage: SPRAY NOSE
     Route: 045
  2. CLARITIN [Suspect]
     Indication: RHINITIS ALLERGIC
     Dosage: 10 MG QD PO
     Route: 048

REACTIONS (1)
  - NO THERAPEUTIC RESPONSE [None]
